FAERS Safety Report 6371234-4 (Version None)
Quarter: 2009Q3

REPORT INFORMATION
  Report Type: 
  Country: None (occurrence: None)
  Receive Date: 20090923
  Receipt Date: 20070712
  Transmission Date: 20100115
  Serious: No
  Sender: FDA-Public Use
  Company Number: US-ASTRAZENECA-2006UW27644

PATIENT
  Age: 8995 Day
  Sex: Male
  Weight: 145.1 kg

DRUGS (21)
  1. SEROQUEL [Suspect]
     Indication: INSOMNIA
     Dosage: 100-600 MG
     Route: 048
     Dates: start: 20040909
  2. SEROQUEL [Suspect]
     Route: 048
     Dates: start: 20040901
  3. ABILIFY [Concomitant]
     Route: 048
  4. RISPERDAL [Concomitant]
     Route: 065
  5. GEODON [Concomitant]
     Dosage: 80 MG ONE IN MORNING, ONE AT BED TIME
     Route: 065
     Dates: start: 20040909
  6. FLOVENT [Concomitant]
     Route: 065
  7. FLUOXETINE [Concomitant]
     Dosage: 20-40 MG
     Route: 065
  8. DEPAKOTE [Concomitant]
     Indication: DEPRESSION
     Route: 065
  9. NOVOLOG [Concomitant]
     Route: 065
  10. NORVASC [Concomitant]
     Indication: HYPERTENSION
     Route: 065
  11. VIAGRA [Concomitant]
     Indication: SEXUAL DYSFUNCTION
     Route: 065
  12. LITHIUM [Concomitant]
     Route: 065
  13. TRAZODONE [Concomitant]
     Route: 065
  14. ALBUTEROL [Concomitant]
     Route: 065
  15. IBUPROFEN [Concomitant]
     Route: 065
  16. GABAPENTIN [Concomitant]
     Route: 065
  17. HYDROCO [Concomitant]
     Dosage: 500-750 MG
     Route: 065
  18. CYCLOBENZAPRINE [Concomitant]
     Route: 065
  19. NICOTINE [Concomitant]
     Route: 065
  20. LISINOPRIL [Concomitant]
     Indication: HYPERTENSION
     Route: 065
  21. ADVAIR HFA [Concomitant]
     Indication: ASTHMA
     Route: 065

REACTIONS (17)
  - ASTHMA [None]
  - BIPOLAR DISORDER [None]
  - BORDERLINE PERSONALITY DISORDER [None]
  - DEPRESSION [None]
  - DIABETES MELLITUS [None]
  - DRUG DEPENDENCE [None]
  - HYPERLIPIDAEMIA [None]
  - HYPERTENSION [None]
  - IMPULSE-CONTROL DISORDER [None]
  - MUSCLE STRAIN [None]
  - OBESITY [None]
  - PSYCHOTIC DISORDER [None]
  - SEXUAL DYSFUNCTION [None]
  - SLEEP APNOEA SYNDROME [None]
  - SUBSTANCE ABUSER [None]
  - TONSILLAR HYPERTROPHY [None]
  - TYPE 2 DIABETES MELLITUS [None]
